FAERS Safety Report 6524481-2 (Version None)
Quarter: 2010Q1

REPORT INFORMATION
  Report Type: 
  Country: None (occurrence: None)
  Receive Date: 20100104
  Receipt Date: 20091221
  Transmission Date: 20100710
  Serious: Yes (Death, Other)
  Sender: FDA-Public Use
  Company Number: US-TEVA-218999USA

PATIENT
  Age: 24 Year
  Sex: Male

DRUGS (1)
  1. PROPOFOL [Suspect]
     Indication: STATUS EPILEPTICUS
     Dosage: 295 UG/KG/MIN

REACTIONS (1)
  - PROPOFOL INFUSION SYNDROME [None]
